FAERS Safety Report 9363681 (Version 1)
Quarter: 2013Q2

REPORT INFORMATION
  Report Type: Spontaneous
  Country: US (occurrence: US)
  Receive Date: 20130624
  Receipt Date: 20130624
  Transmission Date: 20140414
  Serious: Yes (Other)
  Sender: FDA-Public Use
  Company Number: US-JNJFOC-20130610173

PATIENT
  Sex: Female

DRUGS (5)
  1. SUDAFED [Suspect]
     Route: 048
  2. SUDAFED [Suspect]
     Indication: SINUS DISORDER
     Route: 048
  3. VICODIN [Concomitant]
     Indication: PAIN
     Route: 065
  4. KLONOPIN [Concomitant]
     Indication: ANXIETY
     Route: 065
  5. BUSPAR [Concomitant]
     Indication: ANTIDEPRESSANT THERAPY
     Route: 065

REACTIONS (2)
  - Loss of consciousness [Recovered/Resolved]
  - Fatigue [Recovered/Resolved]
